FAERS Safety Report 12244401 (Version 1)
Quarter: 2016Q2

REPORT INFORMATION
  Report Type: Report from Study
  Country: US (occurrence: US)
  Receive Date: 20160407
  Receipt Date: 20160407
  Transmission Date: 20160815
  Serious: Yes (Other)
  Sender: FDA-Public Use
  Company Number: US-ROCHE-1736896

PATIENT
  Age: 7 Year
  Sex: Male
  Weight: 20.3 kg

DRUGS (3)
  1. CLONIDINE. [Concomitant]
     Active Substance: CLONIDINE
  2. NUTROPIN AQ [Suspect]
     Active Substance: SOMATROPIN
     Indication: CYTOGENETIC ABNORMALITY
     Route: 058
  3. L-ARGININE [Concomitant]
     Active Substance: ARGININE

REACTIONS (2)
  - Streptococcal infection [Unknown]
  - Scarlet fever [Unknown]

NARRATIVE: CASE EVENT DATE: 201512
